FAERS Safety Report 5724504-4 (Version None)
Quarter: 2008Q2

REPORT INFORMATION
  Report Type: 
  Country: None (occurrence: None)
  Receive Date: 20080429
  Receipt Date: 20080422
  Transmission Date: 20081010
  Serious: Yes (Hospitalization)
  Sender: FDA-Public Use
  Company Number: GXKR2008GB03847

PATIENT
  Age: 56 Year
  Sex: Male
  Weight: 74 kg

DRUGS (1)
  1. CO-CODAMOL (NGX)(ACETAMINOPHEN (PARACETAMOL), CODEINE PHOSPHATE) UNKNO [Suspect]
     Indication: BACK PAIN
     Dosage: 1 DF, PRN4SD, ORAL
     Route: 048
     Dates: start: 20050801, end: 20080409

REACTIONS (1)
  - INTUSSUSCEPTION [None]
